FAERS Safety Report 10873445 (Version 1)
Quarter: 2015Q1

REPORT INFORMATION
  Report Type: Spontaneous
  Country: US (occurrence: None)
  Receive Date: 20150224
  Receipt Date: 20150224
  Transmission Date: 20150721
  Serious: Yes (Death, Other)
  Sender: FDA-Public Use
  Company Number: 2749511

PATIENT
  Age: 66 Year
  Sex: Male
  Weight: 90 kg

DRUGS (17)
  1. VINCRISTINE SULFATE. [Suspect]
     Active Substance: VINCRISTINE SULFATE
     Indication: ANGIOIMMUNOBLASTIC T-CELL LYMPHOMA
     Route: 042
     Dates: start: 20141220, end: 20141220
  2. CYANOCOBALAMIN. [Concomitant]
     Active Substance: CYANOCOBALAMIN
  3. CALCIUM CARBONATE W/COLECALCIFEROL [Concomitant]
     Active Substance: CALCIUM CARBONATE\CHOLECALCIFEROL
  4. ALLOPURINOL. [Concomitant]
     Active Substance: ALLOPURINOL
  5. LOSARTAN [Concomitant]
     Active Substance: LOSARTAN
  6. ZOPICLONE [Concomitant]
     Active Substance: ZOPICLONE
  7. DOXORUBICIN HYDROCHLORIDE. [Suspect]
     Active Substance: DOXORUBICIN HYDROCHLORIDE
     Indication: ANGIOIMMUNOBLASTIC T-CELL LYMPHOMA
     Route: 042
     Dates: start: 20141220, end: 20141220
  8. PREDNISOLONE. [Concomitant]
     Active Substance: PREDNISOLONE
  9. LORATADINE. [Concomitant]
     Active Substance: LORATADINE
  10. METOCLOPRAMIDE. [Concomitant]
     Active Substance: METOCLOPRAMIDE
  11. CYCLOPHOSPHAMIDE. [Suspect]
     Active Substance: CYCLOPHOSPHAMIDE
     Indication: ANGIOIMMUNOBLASTIC T-CELL LYMPHOMA
     Route: 042
     Dates: start: 20141220, end: 20141220
  12. ACICLOVIR [Concomitant]
     Active Substance: ACYCLOVIR
  13. ALENDRONATE [Concomitant]
     Active Substance: ALENDRONATE SODIUM
  14. FEXOFENADINE [Concomitant]
     Active Substance: FEXOFENADINE\FEXOFENADINE HYDROCHLORIDE
  15. ONDANSETRON [Concomitant]
     Active Substance: ONDANSETRON
  16. DIAZEPAM. [Concomitant]
     Active Substance: DIAZEPAM
  17. OMEPRAZOLE. [Concomitant]
     Active Substance: OMEPRAZOLE

REACTIONS (3)
  - Cardiotoxicity [None]
  - Cardiomyopathy [None]
  - Sepsis [None]
